FAERS Safety Report 17733778 (Version 3)
Quarter: 2020Q2

REPORT INFORMATION
  Report Type: Spontaneous
  Country: DK (occurrence: DK)
  Receive Date: 20200501
  Receipt Date: 20200530
  Transmission Date: 20200714
  Serious: Yes (Life-Threatening, Hospitalization, Other)
  Sender: FDA-Public Use
  Company Number: DK-ACCORD-180059

PATIENT
  Age: 67 Year
  Sex: Female
  Weight: 84.1 kg

DRUGS (2)
  1. CARBOPLATIN. [Suspect]
     Active Substance: CARBOPLATIN
     Indication: SQUAMOUS CELL CARCINOMA
     Dosage: ON A WEEKLY BASIS
     Route: 042
     Dates: start: 20190205, end: 20190227
  2. NIMORAZOLE [Suspect]
     Active Substance: NIMORAZOLE
     Indication: SQUAMOUS CELL CARCINOMA
     Dates: start: 20190205, end: 20190226

REACTIONS (5)
  - Deep vein thrombosis [Recovered/Resolved with Sequelae]
  - Pulmonary embolism [Recovered/Resolved]
  - Venous thrombosis [Recovered/Resolved with Sequelae]
  - Necrosis ischaemic [Recovered/Resolved with Sequelae]
  - Lacunar infarction [Recovered/Resolved]

NARRATIVE: CASE EVENT DATE: 20190226
